FAERS Safety Report 17794812 (Version 1)
Quarter: 2020Q2

REPORT INFORMATION
  Report Type: Spontaneous
  Country: CN (occurrence: CN)
  Receive Date: 20200515
  Receipt Date: 20200515
  Transmission Date: 20200714
  Serious: Yes (Other)
  Sender: FDA-Public Use
  Company Number: CN-BAUSCH-BL-2020-012603

PATIENT
  Age: 87 Year
  Sex: Female

DRUGS (1)
  1. TROPICAMIDE EYE DROPS [Suspect]
     Active Substance: TROPICAMIDE
     Indication: OPHTHALMOLOGICAL EXAMINATION
     Dosage: 1 DROP INTO THE LEFT EYE; SECOND DROP WAS ADMINISTERED 5 MINUTES LATER
     Route: 047
     Dates: start: 20200408, end: 20200408

REACTIONS (4)
  - Corneal opacity [Recovering/Resolving]
  - Intraocular pressure increased [Recovering/Resolving]
  - Conjunctival hyperaemia [Recovering/Resolving]
  - Corneal oedema [Recovering/Resolving]

NARRATIVE: CASE EVENT DATE: 20200408
